FAERS Safety Report 4807123-3 (Version None)
Quarter: 2005Q4

REPORT INFORMATION
  Report Type: 
  Country: None (occurrence: None)
  Receive Date: 20051024
  Receipt Date: 20051014
  Transmission Date: 20060501
  Serious: Yes (Other)
  Sender: FDA-Public Use
  Company Number: FR-GLAXOSMITHKLINE-B0397809A

PATIENT
  Age: 39 Year
  Sex: Male

DRUGS (2)
  1. ZEFFIX [Suspect]
     Indication: HEPATITIS B
     Dosage: 100MG PER DAY
     Route: 048
     Dates: start: 20011201
  2. HEPSERA [Suspect]
     Indication: HEPATITIS B
     Route: 048
     Dates: start: 20030401

REACTIONS (3)
  - CREATININE RENAL CLEARANCE DECREASED [None]
  - PROTEINURIA [None]
  - RENAL FAILURE [None]
